FAERS Safety Report 8884996 (Version 3)
Quarter: 2013Q1

REPORT INFORMATION
  Report Type: Spontaneous
  Country: US (occurrence: US)
  Receive Date: 20121105
  Receipt Date: 20130304
  Transmission Date: 20140127
  Serious: Yes (Hospitalization)
  Sender: FDA-Public Use
  Company Number: US-BIOGENIDEC-2012BI048410

PATIENT
  Age: 54 Year
  Sex: Male

DRUGS (2)
  1. TYSABRI [Suspect]
     Indication: MULTIPLE SCLEROSIS
     Route: 042
     Dates: start: 20101209, end: 20120920
  2. AVONEX [Concomitant]
     Indication: MULTIPLE SCLEROSIS
     Route: 030
     Dates: start: 20000301

REACTIONS (8)
  - Fall [Unknown]
  - Face injury [Unknown]
  - Skeletal injury [Unknown]
  - Contusion [Unknown]
  - Pneumothorax traumatic [Unknown]
  - Hypoxia [Unknown]
  - Loss of consciousness [Unknown]
  - Rib fracture [Recovered/Resolved]
